FAERS Safety Report 20235286 (Version 1)
Quarter: 2021Q4

REPORT INFORMATION
  Report Type: Spontaneous
  Country: FR (occurrence: FR)
  Receive Date: 20211228
  Receipt Date: 20211228
  Transmission Date: 20220303
  Serious: Yes (Hospitalization, Other)
  Sender: FDA-Public Use
  Company Number: FR-AFSSAPS-NY20215421

PATIENT
  Age: 75 Year
  Sex: Female
  Weight: 60 kg

DRUGS (8)
  1. DOXORUBICIN [Suspect]
     Active Substance: DOXORUBICIN
     Indication: Non-Hodgkin^s lymphoma
     Dosage: 1 DOSAGE FORM
     Route: 041
     Dates: start: 20211014
  2. PREDNISONE [Suspect]
     Active Substance: PREDNISONE
     Indication: Non-Hodgkin^s lymphoma
     Dosage: 1 DOSAGE FORM
     Route: 041
     Dates: start: 20211014
  3. COMIRNATY [Suspect]
     Active Substance: TOZINAMERAN
     Indication: COVID-19 immunisation
     Dosage: 1 DOSAGE FORM (D1)
     Route: 030
     Dates: start: 20210323
  4. COMIRNATY [Suspect]
     Active Substance: TOZINAMERAN
     Dosage: 1 DOSAGE FORM (D2)
     Route: 030
     Dates: start: 20210426
  5. COMIRNATY [Suspect]
     Active Substance: TOZINAMERAN
     Dosage: 1 DOSAGE FORM (D3)
     Route: 030
     Dates: start: 20211011
  6. CYCLOPHOSPHAMIDE [Suspect]
     Active Substance: CYCLOPHOSPHAMIDE
     Indication: Non-Hodgkin^s lymphoma
     Dosage: 1 DOSAGE FORM
     Route: 041
     Dates: start: 20211014
  7. OBINUTUZUMAB [Suspect]
     Active Substance: OBINUTUZUMAB
     Indication: Non-Hodgkin^s lymphoma
     Dosage: 1 DOSAGE FORM
     Route: 041
     Dates: start: 20211014
  8. VINCRISTINE SULFATE [Suspect]
     Active Substance: VINCRISTINE SULFATE
     Indication: Non-Hodgkin^s lymphoma
     Dosage: 1 DOSAGE FORM
     Route: 041
     Dates: start: 20211014

REACTIONS (2)
  - COVID-19 pneumonia [Recovering/Resolving]
  - Vaccination failure [Recovering/Resolving]

NARRATIVE: CASE EVENT DATE: 20211115
